FAERS Safety Report 6910329-0 (Version None)
Quarter: 2010Q3

REPORT INFORMATION
  Report Type: 
  Country: None (occurrence: None)
  Receive Date: 20100806
  Receipt Date: 20100730
  Transmission Date: 20110219
  Serious: Yes (Other)
  Sender: FDA-Public Use
  Company Number: US-PFIZER INC-2010077965

PATIENT
  Sex: Female
  Weight: 129.25 kg

DRUGS (9)
  1. LIPITOR [Suspect]
     Indication: BLOOD CHOLESTEROL INCREASED
     Dosage: 40 MG, 1X/DAY
     Route: 048
     Dates: start: 20090401
  2. CLONIDINE [Concomitant]
     Indication: HYPERTENSION
     Dosage: 0.15 MG, 4X/DAY
  3. INDAPAMIDE [Concomitant]
     Indication: HYPERTENSION
     Dosage: UNK
  4. ACCUPRIL [Concomitant]
     Indication: HYPERTENSION
     Dosage: 20 MG, 2X/DAY
  5. NORVASC [Concomitant]
     Indication: HYPERTENSION
     Dosage: 5 MG, DAILY
  6. SPIRONOLACTONE [Concomitant]
     Indication: DIURETIC THERAPY
     Dosage: UNK
  7. WARFARIN [Concomitant]
     Dosage: 5 MG, UNK
  8. SYNTHROID [Concomitant]
     Dosage: 88 UG, UNK
  9. XANAX [Concomitant]
     Dosage: 1 MG, 1X/DAY

REACTIONS (1)
  - ROTATOR CUFF SYNDROME [None]
